FAERS Safety Report 5378888-X (Version None)
Quarter: 2007Q3

REPORT INFORMATION
  Report Type: 
  Country: None (occurrence: None)
  Receive Date: 20070705
  Receipt Date: 20070627
  Transmission Date: 20080115
  Serious: Yes (Hospitalization)
  Sender: FDA-Public Use
  Company Number: PHNU2007DE01444

PATIENT
  Age: 64 Year
  Sex: Female
  Weight: 108 kg

DRUGS (20)
  1. FEMARA [Suspect]
     Indication: BREAST CANCER
     Dosage: 2.5 MG
     Route: 048
     Dates: start: 20061010, end: 20070315
  2. FUROSEMIDE [Concomitant]
     Dosage: 40 MG, QD
     Route: 048
  3. DECORTIN [Concomitant]
     Dosage: 5 MG, QD
     Route: 048
  4. DOXEPIN HCL [Suspect]
     Dosage: 1 DF, QD
     Route: 048
  5. ASPIRIN [Concomitant]
     Dosage: 100 MG, QD
     Route: 048
  6. THEOPHYLLINE [Concomitant]
     Route: 065
  7. EFEROX [Concomitant]
     Dosage: 100 MG, QD
     Route: 048
  8. MORPHINE [Suspect]
     Dosage: 10 MG, QD
     Route: 048
  9. FLUPIRTINE MALEATE [Suspect]
     Dosage: 1 DF, QD
     Route: 048
  10. FENTANYL [Concomitant]
     Dosage: 75 UG/HR, Q72H
     Route: 062
  11. AMILORETIC [Concomitant]
     Route: 065
  12. METOCLOPRAMIDE [Concomitant]
     Dosage: 20 DRP, TID
     Route: 048
  13. LACTULOSE [Concomitant]
     Dosage: 20 MG, TID
     Route: 048
  14. PANTOPRAZOLE SODIUM [Concomitant]
     Indication: HELICOBACTER PYLORI IDENTIFICATION TEST POSITIVE
     Dosage: 40 MG, BID
     Route: 048
  15. VALORON [Concomitant]
     Dosage: 100 MG, UNK
  16. LYRICA [Concomitant]
     Route: 065
  17. OSSOFORTIN FORTE [Concomitant]
     Route: 065
  18. OMEPRAZOLE [Concomitant]
     Route: 065
  19. MACROGOL [Concomitant]
     Dosage: 1 DF, BID
     Route: 065
  20. BUDESONIDE W/FORMOTEROL FUMARATE [Concomitant]
     Dosage: 2 DF, BID

REACTIONS (26)
  - ABDOMINAL PAIN UPPER [None]
  - ALANINE AMINOTRANSFERASE INCREASED [None]
  - ASPARTATE AMINOTRANSFERASE INCREASED [None]
  - BLOOD LACTATE DEHYDROGENASE INCREASED [None]
  - CYTOMEGALOVIRUS INFECTION [None]
  - CYTOMEGALOVIRUS TEST POSITIVE [None]
  - DEHYDRATION [None]
  - ENDOSCOPY UPPER GASTROINTESTINAL TRACT ABNORMAL [None]
  - EPSTEIN-BARR VIRUS ANTIBODY POSITIVE [None]
  - EPSTEIN-BARR VIRUS INFECTION [None]
  - GAMMA-GLUTAMYLTRANSFERASE INCREASED [None]
  - GASTRITIS [None]
  - HAEMOGLOBIN DECREASED [None]
  - HEADACHE [None]
  - HELICOBACTER PYLORI IDENTIFICATION TEST POSITIVE [None]
  - HEPATITIS [None]
  - HEPATITIS A [None]
  - HEPATITIS A ANTIBODY POSITIVE [None]
  - HEPATOMEGALY [None]
  - HIATUS HERNIA [None]
  - INFLUENZA LIKE ILLNESS [None]
  - LIPASE INCREASED [None]
  - NAUSEA [None]
  - PAIN IN EXTREMITY [None]
  - ULTRASOUND ABDOMEN ABNORMAL [None]
  - VOMITING [None]
